FAERS Safety Report 10570598 (Version 4)
Quarter: 2016Q3

REPORT INFORMATION
  Report Type: Spontaneous
  Country: US (occurrence: US)
  Receive Date: 20141107
  Receipt Date: 20160805
  Transmission Date: 20161109
  Serious: Yes (Disabling, Other)
  Sender: FDA-Public Use
  Company Number: US-MERCK-1411USA000518

PATIENT
  Sex: Female

DRUGS (3)
  1. FOSAMAX PLUS D [Suspect]
     Active Substance: ALENDRONATE SODIUM\CHOLECALCIFEROL
     Indication: OSTEOPOROSIS
     Dosage: 70 MG/5600 IU, QW
     Route: 048
     Dates: start: 2007, end: 2008
  2. FOSAMAX [Suspect]
     Active Substance: ALENDRONATE SODIUM
     Indication: OSTEOPOROSIS
     Dosage: 70 MG, QW
     Route: 048
     Dates: start: 1999, end: 2007
  3. CALCIUM (UNSPECIFIED) [Concomitant]
     Active Substance: CALCIUM
     Indication: PRODUCT USED FOR UNKNOWN INDICATION
     Dosage: 1000 MG, QD
     Route: 065

REACTIONS (13)
  - Wrist fracture [Unknown]
  - Poor dental condition [Unknown]
  - Atrophy [Unknown]
  - Vertebral osteophyte [Unknown]
  - Spinal disorder [Unknown]
  - Femur fracture [Unknown]
  - Femur fracture [Unknown]
  - Hot flush [Unknown]
  - Polyarthritis [Unknown]
  - Oestrogen deficiency [Unknown]
  - Foot fracture [Unknown]
  - Blood urine present [Unknown]
  - Drug intolerance [Unknown]

NARRATIVE: CASE EVENT DATE: 1999
